FAERS Safety Report 5594288-1 (Version None)
Quarter: 2008Q1

REPORT INFORMATION
  Report Type: 
  Country: None (occurrence: None)
  Receive Date: 20080117
  Receipt Date: 20080110
  Transmission Date: 20080703
  Serious: Yes (Hospitalization)
  Sender: FDA-Public Use
  Company Number: PHRM2008FR00562

PATIENT
  Age: 78 Year
  Sex: Male

DRUGS (7)
  1. EXELON [Suspect]
     Indication: COGNITIVE DISORDER
     Route: 048
     Dates: start: 20070622, end: 20070708
  2. ROPINIROLE HCL [Suspect]
     Indication: RESTLESS LEGS SYNDROME
     Route: 048
     Dates: start: 20060401, end: 20070708
  3. SIMVASTATIN [Concomitant]
     Indication: HYPERCHOLESTEROLAEMIA
     Dosage: UNK, UNK
     Route: 048
     Dates: end: 20070708
  4. PRETERAX [Concomitant]
     Indication: HYPERTENSION
     Dates: end: 20070708
  5. KARDEGIC [Concomitant]
     Route: 048
  6. ATHYMIL [Concomitant]
     Route: 048
     Dates: end: 20070708
  7. VASTAREL [Concomitant]
     Route: 048
     Dates: end: 20070708

REACTIONS (4)
  - C-REACTIVE PROTEIN INCREASED [None]
  - CONFUSIONAL STATE [None]
  - INFLAMMATION [None]
  - WHITE BLOOD CELL COUNT INCREASED [None]
